FAERS Safety Report 6742863-0 (Version None)
Quarter: 2010Q2

REPORT INFORMATION
  Report Type: 
  Country: None (occurrence: None)
  Receive Date: 20100526
  Receipt Date: 20100512
  Transmission Date: 20101027
  Serious: Yes (Hospitalization)
  Sender: FDA-Public Use
  Company Number: FR-MYLANLABS-2010S1008351

PATIENT
  Age: 48 Year
  Sex: Female

DRUGS (3)
  1. IBUPROFEN [Suspect]
     Indication: TENDONITIS
     Route: 065
  2. ALPRAZOLAM [Concomitant]
     Indication: TENDONITIS
     Route: 065
  3. FLUOXETINE [Concomitant]
     Indication: TENDONITIS
     Route: 065

REACTIONS (1)
  - DRUG RASH WITH EOSINOPHILIA AND SYSTEMIC SYMPTOMS [None]
